FAERS Safety Report 7798809-X (Version None)
Quarter: 2011Q4

REPORT INFORMATION
  Report Type: 
  Country: None (occurrence: None)
  Receive Date: 20111005
  Receipt Date: 20111005
  Transmission Date: 20120403
  Serious: Yes (Hospitalization)
  Sender: FDA-Public Use
  Company Number: None

PATIENT
  Sex: Female
  Weight: 73.57 kg

DRUGS (2)
  1. TAXOL [Suspect]
     Dosage: 325 MG
     Dates: end: 20110824
  2. CISPLATIN [Suspect]
     Dosage: 46 MG
     Dates: end: 20110824

REACTIONS (6)
  - VOMITING [None]
  - DIARRHOEA HAEMORRHAGIC [None]
  - HAEMOGLOBIN DECREASED [None]
  - REFUSAL OF TREATMENT BY PATIENT [None]
  - URINARY TRACT INFECTION [None]
  - NAUSEA [None]
